FAERS Safety Report 5754255-1 (Version None)
Quarter: 2008Q2

REPORT INFORMATION
  Report Type: 
  Country: None (occurrence: None)
  Receive Date: 20080530
  Receipt Date: 20080522
  Transmission Date: 20081010
  Serious: Yes (Hospitalization, Other)
  Sender: FDA-Public Use
  Company Number: US-PFIZER INC-2004088822

PATIENT
  Sex: Female
  Weight: 81.6 kg

DRUGS (6)
  1. CELEBREX [Suspect]
     Indication: OSTEOARTHRITIS
     Route: 048
  2. TYLOX [Concomitant]
     Route: 048
  3. ALL OTHER THERAPEUTIC PRODUCTS [Concomitant]
     Route: 048
  4. FOSAMAX [Concomitant]
     Route: 048
  5. TEMAZEPAM [Concomitant]
     Route: 048
  6. FLEXERIL [Concomitant]

REACTIONS (7)
  - CEREBROVASCULAR ACCIDENT [None]
  - FATIGUE [None]
  - HEADACHE [None]
  - MONOPLEGIA [None]
  - PAIN [None]
  - SPEECH DISORDER [None]
  - TINNITUS [None]
